FAERS Safety Report 5080164-X (Version None)
Quarter: 2006Q3

REPORT INFORMATION
  Report Type: 
  Country: None (occurrence: None)
  Receive Date: 20060815
  Receipt Date: 20050901
  Transmission Date: 20061208
  Serious: Yes (Hospitalization)
  Sender: FDA-Public Use
  Company Number: 200512943FR

PATIENT
  Age: 65 Year
  Sex: Female
  Weight: 50 kg

DRUGS (12)
  1. ARAVA [Suspect]
     Indication: RHEUMATOID ARTHRITIS
     Route: 048
     Dates: start: 20020719, end: 20041122
  2. ARAVA [Suspect]
     Route: 048
     Dates: start: 20050301, end: 20050412
  3. ARAVA [Suspect]
     Route: 048
     Dates: end: 20050901
  4. ENBREL [Suspect]
     Indication: RHEUMATOID ARTHRITIS
     Route: 058
     Dates: start: 20040224, end: 20050907
  5. ACTONEL [Suspect]
     Route: 048
     Dates: start: 20010601, end: 20030715
  6. ACTONEL [Suspect]
     Route: 048
     Dates: start: 20030716, end: 20060125
  7. SULFASALAZINE [Concomitant]
     Indication: RHEUMATOID ARTHRITIS
     Route: 048
     Dates: start: 19990301
  8. OMEPRAZOLE [Concomitant]
     Route: 048
  9. IDEOS [Concomitant]
     Route: 048
  10. CORTANCYL [Concomitant]
     Indication: RHEUMATOID ARTHRITIS
     Route: 048
     Dates: start: 20041201
  11. CORTANCYL [Concomitant]
     Route: 048
  12. CLARADOL [Concomitant]
     Route: 048

REACTIONS (2)
  - ALOPECIA [None]
  - SCLERITIS [None]
